FAERS Safety Report 14450207 (Version 3)
Quarter: 2018Q1

REPORT INFORMATION
  Report Type: Spontaneous
  Country: US (occurrence: US)
  Receive Date: 20180129
  Receipt Date: 20180316
  Transmission Date: 20180509
  Serious: No
  Sender: FDA-Public Use
  Company Number: US-ASTRAZENECA-2018SE11159

PATIENT
  Age: 18275 Day
  Sex: Female
  Weight: 77.1 kg

DRUGS (9)
  1. HUMALOG [Concomitant]
     Active Substance: INSULIN LISPRO
     Dosage: UNKNOWN
     Route: 065
  2. ISOSORBIDE MONONITRATE. [Concomitant]
     Active Substance: ISOSORBIDE MONONITRATE
     Indication: STENT PLACEMENT
     Route: 048
     Dates: start: 20170716
  3. EZETIMIBE. [Concomitant]
     Active Substance: EZETIMIBE
     Dosage: UNKNOWN
     Route: 065
  4. LEVEMIR [Concomitant]
     Active Substance: INSULIN DETEMIR
     Dosage: UNKNOWN
     Route: 065
  5. GABAPENTIN. [Concomitant]
     Active Substance: GABAPENTIN
     Dosage: UNKNOWN
     Route: 065
  6. NORCO [Concomitant]
     Active Substance: ACETAMINOPHEN\HYDROCODONE BITARTRATE
     Indication: BACK PAIN
     Dosage: UNKNOWN
     Route: 065
  7. BRILINTA [Suspect]
     Active Substance: TICAGRELOR
     Indication: STENT PLACEMENT
     Route: 048
     Dates: start: 20170716
  8. METOPROLOL TARTRATE. [Suspect]
     Active Substance: METOPROLOL TARTRATE
     Indication: STENT PLACEMENT
     Route: 048
     Dates: start: 20170716
  9. ASPIRIN. [Concomitant]
     Active Substance: ASPIRIN
     Indication: STENT PLACEMENT
     Route: 048
     Dates: start: 20170716

REACTIONS (5)
  - Mass [Recovered/Resolved]
  - Fibromyalgia [Not Recovered/Not Resolved]
  - Hypopnoea [Recovering/Resolving]
  - Chest pain [Recovered/Resolved]
  - Heart rate decreased [Unknown]

NARRATIVE: CASE EVENT DATE: 20170808
